FAERS Safety Report 22380462 (Version 1)
Quarter: 2023Q2

REPORT INFORMATION
  Report Type: Report from Study
  Country: DE (occurrence: DE)
  Receive Date: 20230529
  Receipt Date: 20230529
  Transmission Date: 20230722
  Serious: Yes (Hospitalization, Congenital Anomaly, Other)
  Sender: FDA-Public Use
  Company Number: DE-002147023-NVSC2022DE205899

PATIENT
  Age: 15 Year
  Sex: Male
  Weight: 45.3 kg

DRUGS (5)
  1. ALPELISIB [Suspect]
     Active Substance: ALPELISIB
     Indication: PIK3CA related overgrowth spectrum
     Dosage: CODE NOT BROKEN
     Route: 048
     Dates: start: 20220803
  2. INVESTIGATIONAL PRODUCT [Suspect]
     Active Substance: INVESTIGATIONAL PRODUCT
     Indication: PIK3CA related overgrowth spectrum
     Dosage: CODE NOT BROKEN
     Route: 048
     Dates: start: 20220803
  3. PLACEBO [Suspect]
     Active Substance: UNSPECIFIED INGREDIENT
     Indication: PIK3CA related overgrowth spectrum
     Dosage: CODE NOT BROKEN
     Route: 048
     Dates: start: 20220803
  4. ALPELISIB [Suspect]
     Active Substance: ALPELISIB
     Indication: PIK3CA related overgrowth spectrum
     Dosage: UNK, NO TREATMENT
     Route: 065
  5. ALPELISIB [Suspect]
     Active Substance: ALPELISIB
     Dosage: 50 MG, QD (EVERY 24 HOURS)
     Route: 048
     Dates: start: 20221123

REACTIONS (2)
  - Epilepsy [Recovered/Resolved]
  - Musculoskeletal pain [Recovered/Resolved]

NARRATIVE: CASE EVENT DATE: 20220910
